FAERS Safety Report 4992018-5 (Version None)
Quarter: 2006Q2

REPORT INFORMATION
  Report Type: 
  Country: None (occurrence: None)
  Receive Date: 20060504
  Receipt Date: 20060425
  Transmission Date: 20061013
  Serious: Yes (Other)
  Sender: FDA-Public Use
  Company Number: JP-JNJFOC-20060405204

PATIENT
  Age: 68 Year
  Sex: Female

DRUGS (1)
  1. TAVANIC [Suspect]
     Indication: DEEP VEIN THROMBOSIS
     Route: 048

REACTIONS (3)
  - CONVULSION [None]
  - ELECTROLYTE IMBALANCE [None]
  - IRRITABILITY [None]
